FAERS Safety Report 11107830 (Version 1)
Quarter: 2015Q2

REPORT INFORMATION
  Report Type: Spontaneous
  Country: US (occurrence: US)
  Receive Date: 20150512
  Receipt Date: 20150512
  Transmission Date: 20150821
  Serious: No
  Sender: FDA-Public Use
  Company Number: US-BAYER-2015-200403

PATIENT
  Age: 90 Year
  Sex: Male
  Weight: 68.27 kg

DRUGS (2)
  1. FLOMAX (TAMSULOSIN) [Concomitant]
     Dosage: UNK
  2. ALEVE [Suspect]
     Active Substance: NAPROXEN SODIUM
     Dosage: 1 DF, QD
     Route: 048
     Dates: start: 201501

REACTIONS (2)
  - Incorrect drug administration duration [None]
  - Drug effect decreased [None]

NARRATIVE: CASE EVENT DATE: 201501
